FAERS Safety Report 5517789-0 (Version None)
Quarter: 2007Q4

REPORT INFORMATION
  Report Type: 
  Country: None (occurrence: None)
  Receive Date: 20071113
  Receipt Date: 20071029
  Transmission Date: 20080405
  Serious: Yes (Other)
  Sender: FDA-Public Use
  Company Number: FABR-12101

PATIENT
  Sex: Male
  Weight: 68.0396 kg

DRUGS (5)
  1. FABRAZYME [Suspect]
     Indication: FABRY'S DISEASE
  2. SIMVASTATIN [Concomitant]
  3. FLONASE [Concomitant]
  4. LISINOPRIL [Concomitant]
  5. COUMADIN [Concomitant]

REACTIONS (6)
  - CARDIAC VALVE DISEASE [None]
  - CEREBRAL DISORDER [None]
  - CEREBROVASCULAR ACCIDENT [None]
  - CORONARY ARTERY OCCLUSION [None]
  - INTRACRANIAL ANEURYSM [None]
  - PROCEDURAL COMPLICATION [None]
